FAERS Safety Report 8178021-5 (Version None)
Quarter: 2012Q1

REPORT INFORMATION
  Report Type: 
  Country: None (occurrence: None)
  Receive Date: 20120301
  Receipt Date: 20120223
  Transmission Date: 20120608
  Serious: Yes (Death)
  Sender: FDA-Public Use
  Company Number: US-CELGENEUS-163-21880-12012613

PATIENT
  Sex: Male
  Weight: 79.45 kg

DRUGS (17)
  1. PRINIVIL [Concomitant]
     Dosage: 10 MILLIGRAM
     Route: 065
  2. REVLIMID [Suspect]
     Dosage: 5 MILLIGRAM
     Route: 048
     Dates: start: 20111001
  3. ALBUTEROL [Concomitant]
     Dosage: 90 MICROGRAM
     Route: 065
  4. VITAMIN B-12 [Concomitant]
     Dosage: 1000 TR
     Route: 065
  5. AMBIEN [Concomitant]
     Dosage: 10 MILLIGRAM
     Route: 065
  6. COREG CR [Concomitant]
     Dosage: 20 MILLIGRAM
     Route: 065
  7. LASIX [Concomitant]
     Dosage: 40 MILLIGRAM
     Route: 065
  8. PRILOSEC [Concomitant]
     Route: 065
  9. ALDACTONE [Concomitant]
     Dosage: 100 MILLIGRAM
     Route: 065
  10. NITROSTAT [Concomitant]
     Dosage: .4 MILLIGRAM
     Route: 058
  11. SIMVASTATIN [Concomitant]
     Dosage: 40 MILLIGRAM
     Route: 065
  12. VITAMIN E [Concomitant]
     Dosage: 1000 UNITS
     Route: 065
  13. DIGOXIN [Concomitant]
     Route: 065
  14. GABAPENTIN [Concomitant]
     Dosage: 300 MILLIGRAM
     Route: 065
  15. BISMUTH SUBSALICYLATE [Concomitant]
     Dosage: 262/15 ML
     Route: 065
  16. FLOMAX [Concomitant]
     Dosage: .4 MILLIGRAM
     Route: 065
  17. VITAMIN D [Concomitant]
     Dosage: 1000 UNITS
     Route: 065

REACTIONS (1)
  - DEATH [None]
